FAERS Safety Report 7816969-9 (Version None)
Quarter: 2011Q4

REPORT INFORMATION
  Report Type: 
  Country: None (occurrence: None)
  Receive Date: 20111017
  Receipt Date: 20111011
  Transmission Date: 20120403
  Serious: Yes (Hospitalization)
  Sender: FDA-Public Use
  Company Number: ES-ROXANE LABORATORIES, INC.-2011-RO-01452RO

PATIENT
  Sex: Female

DRUGS (2)
  1. MYCOPHENOLATE MOFETIL [Suspect]
     Indication: LUPUS NEPHRITIS
  2. PREDNISONE [Suspect]
     Indication: LUPUS NEPHRITIS
     Route: 048

REACTIONS (2)
  - CYTOMEGALOVIRUS COLITIS [None]
  - NOCARDIOSIS [None]
